FAERS Safety Report 25564472 (Version 1)
Quarter: 2025Q3

REPORT INFORMATION
  Report Type: Spontaneous
  Country: EU (occurrence: EU)
  Receive Date: 20250716
  Receipt Date: 20250716
  Transmission Date: 20251020
  Serious: Yes (Life-Threatening, Hospitalization, Other)
  Sender: ASTELLAS
  Company Number: EU-ASTELLAS-2025-AER-038575

PATIENT
  Age: 72 Year
  Sex: Male

DRUGS (5)
  1. TACROLIMUS [Suspect]
     Active Substance: TACROLIMUS
     Indication: Myocarditis-myositis-myasthenia gravis overlap syndrome
     Route: 065
     Dates: start: 2024, end: 2024
  2. METHYLPREDNISOLONE [Concomitant]
     Active Substance: METHYLPREDNISOLONE
     Indication: Myocarditis-myositis-myasthenia gravis overlap syndrome
     Route: 042
     Dates: start: 2024
  3. METHYLPREDNISOLONE [Concomitant]
     Active Substance: METHYLPREDNISOLONE
     Route: 042
     Dates: start: 2024
  4. PYRIDOSTIGMINE [Concomitant]
     Active Substance: PYRIDOSTIGMINE
     Indication: Myocarditis-myositis-myasthenia gravis overlap syndrome
     Route: 065
     Dates: start: 2024
  5. CYCLOSPORINE [Concomitant]
     Active Substance: CYCLOSPORINE
     Indication: Myocarditis-myositis-myasthenia gravis overlap syndrome
     Route: 065
     Dates: start: 2024, end: 2024

REACTIONS (4)
  - Bicytopenia [Recovered/Resolved]
  - Anaemia [Recovered/Resolved]
  - Thrombocytopenia [Recovered/Resolved]
  - Off label use [Unknown]

NARRATIVE: CASE EVENT DATE: 20240101
